FAERS Safety Report 25145017 (Version 1)
Quarter: 2025Q2

REPORT INFORMATION
  Report Type: Spontaneous
  Country: US (occurrence: US)
  Receive Date: 20250401
  Receipt Date: 20250401
  Transmission Date: 20250716
  Serious: No
  Sender: PFIZER
  Company Number: US-PFIZER INC-202500068410

PATIENT
  Age: 89 Year
  Sex: Female

DRUGS (9)
  1. IBRANCE [Suspect]
     Active Substance: PALBOCICLIB
     Route: 048
     Dates: start: 20220712
  2. AMLODIPINE [Concomitant]
     Active Substance: AMLODIPINE BESYLATE
  3. ATORVASTATIN [Concomitant]
     Active Substance: ATORVASTATIN
  4. LETROZOLE [Concomitant]
     Active Substance: LETROZOLE
  5. OYSCO [Concomitant]
  6. PEPCID [Concomitant]
     Active Substance: FAMOTIDINE
  7. POTASSIUM CHLORIDE [Concomitant]
     Active Substance: POTASSIUM CHLORIDE
  8. PROLIA [Concomitant]
     Active Substance: DENOSUMAB
  9. TUMS EX [Concomitant]
     Active Substance: CALCIUM CARBONATE

REACTIONS (4)
  - Pain in extremity [Unknown]
  - Joint fluid drainage [Unknown]
  - Asthenia [Unknown]
  - Sleep disorder [Unknown]

NARRATIVE: CASE EVENT DATE: 20250301
